FAERS Safety Report 18180486 (Version 1)
Quarter: 2020Q3

REPORT INFORMATION
  Report Type: Spontaneous
  Country: DE (occurrence: DE)
  Receive Date: 20200821
  Receipt Date: 20200821
  Transmission Date: 20201103
  Serious: Yes (Other)
  Sender: FDA-Public Use
  Company Number: DE-009507513-2008DEU010469

PATIENT
  Sex: Female
  Weight: 59 kg

DRUGS (2)
  1. IMPLANON NXT [Suspect]
     Active Substance: ETONOGESTREL
     Dosage: ONE IMPLANT, ONLY ONCE
     Route: 059
     Dates: start: 201912, end: 20200713
  2. JUBRELE [Suspect]
     Active Substance: DESOGESTREL
     Dosage: 75 MICROGRAMM, ONCE DAILY
     Route: 048
     Dates: start: 201910, end: 201912

REACTIONS (6)
  - Gastrointestinal candidiasis [Recovered/Resolved]
  - Mood swings [Recovered/Resolved]
  - Gastrointestinal disorder [Recovered/Resolved]
  - Hypovitaminosis [Recovered/Resolved]
  - Pruritus [Unknown]
  - Neurodermatitis [Recovered/Resolved]

NARRATIVE: CASE EVENT DATE: 2020
